FAERS Safety Report 9803726 (Version 1)
Quarter: 2014Q1

REPORT INFORMATION
  Report Type: Spontaneous
  Country: US (occurrence: US)
  Receive Date: 20140108
  Receipt Date: 20140108
  Transmission Date: 20141002
  Serious: No
  Sender: FDA-Public Use
  Company Number: US-GLAXOSMITHKLINE-A1027460A

PATIENT
  Age: 81 Year
  Sex: Male

DRUGS (11)
  1. LOVAZA [Suspect]
     Indication: BLOOD TRIGLYCERIDES INCREASED
     Route: 048
     Dates: start: 2011
  2. LIPITOR [Concomitant]
  3. LANTUS [Concomitant]
  4. APIDRA [Concomitant]
  5. LISINOPRIL [Concomitant]
  6. TRICOR [Concomitant]
  7. ALLOPURINOL [Concomitant]
  8. LEVOTHYROXINE [Concomitant]
  9. METOPROLOL [Concomitant]
  10. LASIX [Concomitant]
  11. EYE DROPS [Concomitant]

REACTIONS (2)
  - Alanine aminotransferase increased [Unknown]
  - Aspartate aminotransferase increased [Unknown]
